FAERS Safety Report 20101110 (Version 1)
Quarter: 2021Q4

REPORT INFORMATION
  Report Type: Spontaneous
  Country: CN (occurrence: CN)
  Receive Date: 20211123
  Receipt Date: 20211123
  Transmission Date: 20220303
  Serious: Yes (Other)
  Sender: FDA-Public Use
  Company Number: CN-BAXTER-2021BAX036426

PATIENT
  Age: 62 Year
  Sex: Female
  Weight: 70 kg

DRUGS (4)
  1. CYCLOPHOSPHAMIDE [Suspect]
     Active Substance: CYCLOPHOSPHAMIDE
     Indication: Breast cancer female
     Dosage: DILUTED WITH 50 ML NS, FIRST CHEMOTHERAPY
     Route: 042
     Dates: start: 20210908, end: 20210908
  2. SODIUM CHLORIDE [Suspect]
     Active Substance: SODIUM CHLORIDE
     Indication: Medication dilution
     Dosage: DILUTED WITH ENDOXAN 1000 MG, FIRST CHEMOTHERAPY
     Route: 042
     Dates: start: 20210908, end: 20210908
  3. SODIUM CHLORIDE [Suspect]
     Active Substance: SODIUM CHLORIDE
     Dosage: DILUTED WITH AIDASHENG 145 MG, FIRST CHEMOTHERAPY
     Route: 041
     Dates: start: 20210908, end: 20210908
  4. EPIRUBICIN HYDROCHLORIDE [Suspect]
     Active Substance: EPIRUBICIN HYDROCHLORIDE
     Indication: Breast cancer female
     Dosage: DILUTED WITH 100 ML NS, FIRST CHEMOTHERAPY
     Route: 041
     Dates: start: 20210908, end: 20210908

REACTIONS (2)
  - White blood cell count decreased [Recovered/Resolved]
  - Agranulocytosis [Recovered/Resolved]

NARRATIVE: CASE EVENT DATE: 20210919
